FAERS Safety Report 16585115 (Version 1)
Quarter: 2019Q3

REPORT INFORMATION
  Report Type: Spontaneous
  Country: US (occurrence: US)
  Receive Date: 20190604
  Receipt Date: 20190604
  Transmission Date: 20191004
  Serious: No
  Sender: FDA-Public Use
  Company Number: None

PATIENT
  Sex: Female

DRUGS (1)
  1. VYVANSE [Suspect]
     Active Substance: LISDEXAMFETAMINE DIMESYLATE

REACTIONS (5)
  - Palpitations [None]
  - Product dose omission [None]
  - Incorrect dose administered [None]
  - Drug withdrawal syndrome [None]
  - Depression [None]

NARRATIVE: CASE EVENT DATE: 2019
